FAERS Safety Report 6953057-8 (Version None)
Quarter: 2010Q3

REPORT INFORMATION
  Report Type: 
  Country: None (occurrence: None)
  Receive Date: 20100829
  Receipt Date: 20100521
  Transmission Date: 20110219
  Serious: No
  Sender: FDA-Public Use
  Company Number: US-ABBOTT-10P-163-0647377-00

PATIENT
  Sex: Male
  Weight: 79.45 kg

DRUGS (5)
  1. NIASPAN [Suspect]
     Indication: BLOOD CHOLESTEROL INCREASED
     Route: 048
     Dates: start: 20100516
  2. MULTI-VITAMIN [Concomitant]
     Indication: VITAMIN SUPPLEMENTATION
  3. SUMATRIPTAN [Concomitant]
     Indication: HEADACHE
     Dosage: 100 MG AS NEEDED
     Dates: start: 20090101
  4. EXCEDERIN [Concomitant]
     Indication: HEADACHE
  5. ADVIL LIQUI-GELS [Concomitant]
     Indication: HEADACHE

REACTIONS (1)
  - HEADACHE [None]
